FAERS Safety Report 8776697 (Version 54)
Quarter: 2015Q3

REPORT INFORMATION
  Report Type: Report from Study
  Country: CA (occurrence: CA)
  Receive Date: 20120910
  Receipt Date: 20150805
  Transmission Date: 20151125
  Serious: Yes (Hospitalization, Other)
  Sender: FDA-Public Use
  Company Number: PHHY2012CA061337

PATIENT
  Age: 70 Year
  Sex: Female

DRUGS (22)
  1. SANDOSTATIN LAR DEPOT [Suspect]
     Active Substance: OCTREOTIDE ACETATE
     Dosage: 60 MG, EVERY 3 WEEKS
     Route: 030
  2. SANDOSTATIN LAR DEPOT [Suspect]
     Active Substance: OCTREOTIDE ACETATE
     Dosage: 60 MG, EVERY 2 WEEKS
     Route: 030
     Dates: start: 20150514
  3. SANDOSTATIN [Suspect]
     Active Substance: OCTREOTIDE ACETATE
     Dosage: 100 UG, QID
     Route: 058
     Dates: start: 20150626
  4. SANDOSTATIN LAR DEPOT [Suspect]
     Active Substance: OCTREOTIDE ACETATE
     Dosage: 60 MG, ONCE PRE-EMBOLIZATION
     Route: 030
     Dates: start: 20140205
  5. SANDOSTATIN LAR DEPOT [Suspect]
     Active Substance: OCTREOTIDE ACETATE
     Dosage: 30 MG, UNK
     Route: 030
  6. SANDOSTATIN [Suspect]
     Active Substance: OCTREOTIDE ACETATE
     Dosage: 150 UG, BID
     Route: 058
  7. AMLODIPINE [Concomitant]
     Active Substance: AMLODIPINE BESYLATE
     Indication: PRODUCT USED FOR UNKNOWN INDICATION
     Route: 065
  8. SANDOSTATIN LAR DEPOT [Suspect]
     Active Substance: OCTREOTIDE ACETATE
     Dosage: 40 MG, EVERY 4 WEEKS
     Route: 030
  9. SANDOSTATIN [Suspect]
     Active Substance: OCTREOTIDE ACETATE
     Dosage: 200 UG, QID/PRN
     Route: 058
     Dates: start: 20140811
  10. SANDOSTATIN LAR DEPOT [Suspect]
     Active Substance: OCTREOTIDE ACETATE
     Indication: NEUROENDOCRINE TUMOUR
     Dosage: 30 MG, EVERY 4 WEEKS
     Route: 030
     Dates: start: 20120710
  11. SANDOSTATIN LAR DEPOT [Suspect]
     Active Substance: OCTREOTIDE ACETATE
     Dosage: 40 MG (30 MG , 10 MG), EVERY 4 WEEKS
     Route: 030
  12. SANDOSTATIN LAR DEPOT [Suspect]
     Active Substance: OCTREOTIDE ACETATE
     Dosage: 60 MG, EVERY 3 WEEKS
     Route: 030
  13. SANDOSTATIN LAR DEPOT [Suspect]
     Active Substance: OCTREOTIDE ACETATE
     Dosage: 30 MG, WEEKLY
     Route: 030
     Dates: end: 20150611
  14. SANDOSTATIN LAR DEPOT [Suspect]
     Active Substance: OCTREOTIDE ACETATE
     Dosage: 60 MG, EVERY 2 WEEKS
     Route: 030
  15. SANDOSTATIN [Suspect]
     Active Substance: OCTREOTIDE ACETATE
     Dosage: 50 UG, ONCE
     Route: 058
  16. SANDOSTATIN [Suspect]
     Active Substance: OCTREOTIDE ACETATE
     Indication: NEUROENDOCRINE TUMOUR
     Dosage: UNK
     Route: 058
  17. SANDOSTATIN [Suspect]
     Active Substance: OCTREOTIDE ACETATE
     Dosage: 400 UG, TID
     Route: 058
  18. SANDOSTATIN [Suspect]
     Active Substance: OCTREOTIDE ACETATE
     Dosage: 500 UG, TID
     Route: 058
     Dates: start: 20141209
  19. SANDOSTATIN [Suspect]
     Active Substance: OCTREOTIDE ACETATE
     Dosage: 500 UG, TID, PRN
     Route: 058
  20. SANDOSTATIN LAR DEPOT [Suspect]
     Active Substance: OCTREOTIDE ACETATE
     Dosage: 60 MG, EVERY 4 WEEKS
     Route: 030
  21. SANDOSTATIN LAR DEPOT [Suspect]
     Active Substance: OCTREOTIDE ACETATE
     Dosage: 40 MG,EVERY 4 WEEKS
     Route: 030
     Dates: start: 20141201
  22. SANDOSTATIN LAR DEPOT [Suspect]
     Active Substance: OCTREOTIDE ACETATE
     Dosage: 60 MG, EVERY 2 WEEKS
     Route: 030

REACTIONS (50)
  - Loss of consciousness [Unknown]
  - Diarrhoea [Not Recovered/Not Resolved]
  - Hepatic neoplasm [Unknown]
  - Generalised erythema [Unknown]
  - Arthralgia [Unknown]
  - Dyspnoea [Recovering/Resolving]
  - Erythema [Unknown]
  - Procedural nausea [Recovered/Resolved]
  - Blood pressure increased [Unknown]
  - Blood count abnormal [Unknown]
  - Blood pressure fluctuation [Unknown]
  - Chills [Unknown]
  - Hyperhidrosis [Unknown]
  - Lethargy [Not Recovered/Not Resolved]
  - Asthenia [Not Recovered/Not Resolved]
  - Injection site pain [Unknown]
  - Dehydration [Unknown]
  - Pallor [Unknown]
  - Scar [Unknown]
  - Nausea [Unknown]
  - Post procedural diarrhoea [Recovered/Resolved]
  - Procedural vomiting [Recovered/Resolved]
  - Malaise [Unknown]
  - Pain in extremity [Recovered/Resolved]
  - Neck pain [Recovering/Resolving]
  - Hypotension [Not Recovered/Not Resolved]
  - Injection site haemorrhage [Unknown]
  - Underdose [Unknown]
  - Pneumonia [Unknown]
  - Blood pressure diastolic decreased [Unknown]
  - Burning sensation [Recovered/Resolved]
  - Paraesthesia [Recovered/Resolved]
  - Gastrointestinal infection [Unknown]
  - Syncope [Unknown]
  - Palpitations [Unknown]
  - Flatulence [Unknown]
  - Heart rate increased [Not Recovered/Not Resolved]
  - Needle issue [Unknown]
  - Hot flush [Recovering/Resolving]
  - Injection site haemorrhage [Recovered/Resolved]
  - Post procedural infection [Unknown]
  - Flushing [Unknown]
  - Fatigue [Not Recovered/Not Resolved]
  - Atrial fibrillation [Unknown]
  - Pyrexia [Recovered/Resolved]
  - Haematochezia [Unknown]
  - Photosensitivity reaction [Unknown]
  - Pain in extremity [Unknown]
  - Heart rate irregular [Unknown]
  - Injection site bruising [Unknown]

NARRATIVE: CASE EVENT DATE: 2014
